FAERS Safety Report 12811415 (Version 1)
Quarter: 2016Q4

REPORT INFORMATION
  Report Type: Spontaneous
  Country: US (occurrence: US)
  Receive Date: 20161005
  Receipt Date: 20161005
  Transmission Date: 20170207
  Serious: No
  Sender: FDA-Public Use
  Company Number: US-PFIZER INC-2016463510

PATIENT
  Age: 50 Year
  Sex: Female

DRUGS (1)
  1. VANCOMYCIN [Suspect]
     Active Substance: VANCOMYCIN

REACTIONS (6)
  - Vomiting [Unknown]
  - Rash [Unknown]
  - Drug intolerance [Unknown]
  - Pruritus [Unknown]
  - Drug hypersensitivity [Unknown]
  - Nausea [Unknown]
